FAERS Safety Report 22142032 (Version 1)
Quarter: 2023Q1

REPORT INFORMATION
  Report Type: Spontaneous
  Country: US (occurrence: US)
  Receive Date: 20230327
  Receipt Date: 20230327
  Transmission Date: 20230417
  Serious: No
  Sender: FDA-Public Use
  Company Number: US-VERTEX PHARMACEUTICALS-2023-004162

PATIENT

DRUGS (2)
  1. TRIKAFTA [Suspect]
     Active Substance: ELEXACAFTOR\IVACAFTOR\TEZACAFTOR
     Indication: Cystic fibrosis
     Dosage: FREQUENCY UNKNOWN
     Route: 048
  2. MINOCICLINA [Concomitant]

REACTIONS (3)
  - Helicobacter infection [Unknown]
  - Gastritis [Unknown]
  - Blood glucose abnormal [Recovering/Resolving]
